FAERS Safety Report 4615285-6 (Version None)
Quarter: 2005Q1

REPORT INFORMATION
  Report Type: 
  Country: None (occurrence: None)
  Receive Date: 20050317
  Receipt Date: 20050302
  Transmission Date: 20050727
  Serious: Yes (Other)
  Sender: FDA-Public Use
  Company Number: 2005037160

PATIENT
  Age: 39 Year
  Sex: Female

DRUGS (5)
  1. BENYLIN [Suspect]
     Indication: INSOMNIA
     Dosage: 2 GALLOPS HS, ORAL
     Route: 048
     Dates: start: 19880801, end: 20050101
  2. DIPHENHYDRAMINE HCL [Concomitant]
  3. NIGHT NURSE (DEXTROMETHORPHAN, PARACETAMOL, PROMETHAZINE HYDROCHLORIDE [Concomitant]
  4. ZOLPIDEM TARTRATE [Concomitant]
  5. THIORIDAZINE HCL [Concomitant]

REACTIONS (4)
  - ANXIETY [None]
  - DEPRESSION [None]
  - DRUG DEPENDENCE [None]
  - FATIGUE [None]
